FAERS Safety Report 10587636 (Version 1)
Quarter: 2014Q4

REPORT INFORMATION
  Report Type: Spontaneous
  Country: CN (occurrence: CN)
  Receive Date: 20141117
  Receipt Date: 20141117
  Transmission Date: 20150529
  Serious: Yes (Other)
  Sender: FDA-Public Use
  Company Number: CN-ASTRAZENECA-2014SE86798

PATIENT
  Sex: Male
  Weight: 75 kg

DRUGS (1)
  1. FELODIPINE. [Suspect]
     Active Substance: FELODIPINE
     Indication: HYPERTENSION
     Route: 048
     Dates: start: 20140112, end: 20140114

REACTIONS (1)
  - Urinary retention [Recovered/Resolved]
